FAERS Safety Report 25342855 (Version 1)
Quarter: 2025Q2

REPORT INFORMATION
  Report Type: Spontaneous
  Country: GB (occurrence: GB)
  Receive Date: 20250521
  Receipt Date: 20250521
  Transmission Date: 20250716
  Serious: Yes (Hospitalization, Other)
  Sender: MYLAN
  Company Number: None

PATIENT
  Age: 84 Year
  Sex: Male

DRUGS (76)
  1. METFORMIN [Suspect]
     Active Substance: METFORMIN HYDROCHLORIDE
     Indication: Product used for unknown indication
     Dosage: 1 GRAM, BID (TWICE A DAY)
  2. METFORMIN [Suspect]
     Active Substance: METFORMIN HYDROCHLORIDE
     Dosage: 1 GRAM, BID (TWICE A DAY)
     Route: 065
  3. METFORMIN [Suspect]
     Active Substance: METFORMIN HYDROCHLORIDE
     Dosage: 1 GRAM, BID (TWICE A DAY)
     Route: 065
  4. METFORMIN [Suspect]
     Active Substance: METFORMIN HYDROCHLORIDE
     Dosage: 1 GRAM, BID (TWICE A DAY)
  5. LERCANIDIPINE [Suspect]
     Active Substance: LERCANIDIPINE
     Indication: Blood pressure increased
     Dosage: 10 MILLIGRAM, QD (10 MG TABLETS ONCE A DAY TEATIME
  6. LERCANIDIPINE [Suspect]
     Active Substance: LERCANIDIPINE
     Dosage: 10 MILLIGRAM, QD (10 MG TABLETS ONCE A DAY TEATIME
     Route: 065
  7. LERCANIDIPINE [Suspect]
     Active Substance: LERCANIDIPINE
     Dosage: 10 MILLIGRAM, QD (10 MG TABLETS ONCE A DAY TEATIME
     Route: 065
  8. LERCANIDIPINE [Suspect]
     Active Substance: LERCANIDIPINE
     Dosage: 10 MILLIGRAM, QD (10 MG TABLETS ONCE A DAY TEATIME
  9. IRBESARTAN [Suspect]
     Active Substance: IRBESARTAN
     Indication: Product used for unknown indication
     Dosage: 75 MILLIGRAM, AM (EVERY MORNING)
  10. IRBESARTAN [Suspect]
     Active Substance: IRBESARTAN
     Dosage: 75 MILLIGRAM, AM (EVERY MORNING)
     Route: 065
  11. IRBESARTAN [Suspect]
     Active Substance: IRBESARTAN
     Dosage: 75 MILLIGRAM, AM (EVERY MORNING)
     Route: 065
  12. IRBESARTAN [Suspect]
     Active Substance: IRBESARTAN
     Dosage: 75 MILLIGRAM, AM (EVERY MORNING)
  13. FUROSEMIDE [Suspect]
     Active Substance: FUROSEMIDE
     Indication: Product used for unknown indication
     Dosage: 40 MILLIGRAM, QD(ONCE DAILY)
  14. FUROSEMIDE [Suspect]
     Active Substance: FUROSEMIDE
     Dosage: 40 MILLIGRAM, QD(ONCE DAILY)
     Route: 065
  15. FUROSEMIDE [Suspect]
     Active Substance: FUROSEMIDE
     Dosage: 40 MILLIGRAM, QD(ONCE DAILY)
     Route: 065
  16. FUROSEMIDE [Suspect]
     Active Substance: FUROSEMIDE
     Dosage: 40 MILLIGRAM, QD(ONCE DAILY)
  17. GLIMEPIRIDE [Suspect]
     Active Substance: GLIMEPIRIDE
     Indication: Product used for unknown indication
     Dosage: 2 MILLIGRAM, AM (EVERY MORNING)
  18. GLIMEPIRIDE [Suspect]
     Active Substance: GLIMEPIRIDE
     Dosage: 2 MILLIGRAM, AM (EVERY MORNING)
     Route: 065
  19. GLIMEPIRIDE [Suspect]
     Active Substance: GLIMEPIRIDE
     Dosage: 2 MILLIGRAM, AM (EVERY MORNING)
     Route: 065
  20. GLIMEPIRIDE [Suspect]
     Active Substance: GLIMEPIRIDE
     Dosage: 2 MILLIGRAM, AM (EVERY MORNING)
  21. LANSOPRAZOLE [Concomitant]
     Active Substance: LANSOPRAZOLE
     Dosage: 30 MILLIGRAM, BID (TWICE A DAY)
  22. LANSOPRAZOLE [Concomitant]
     Active Substance: LANSOPRAZOLE
     Dosage: 30 MILLIGRAM, BID (TWICE A DAY)
     Route: 065
  23. LANSOPRAZOLE [Concomitant]
     Active Substance: LANSOPRAZOLE
     Dosage: 30 MILLIGRAM, BID (TWICE A DAY)
     Route: 065
  24. LANSOPRAZOLE [Concomitant]
     Active Substance: LANSOPRAZOLE
     Dosage: 30 MILLIGRAM, BID (TWICE A DAY)
  25. CALCIUM\CHOLECALCIFEROL [Concomitant]
     Active Substance: CALCIUM\CHOLECALCIFEROL
     Dosage: 1 DOSAGE FORM, BID (1 TWICE A DAY)
  26. CALCIUM\CHOLECALCIFEROL [Concomitant]
     Active Substance: CALCIUM\CHOLECALCIFEROL
     Dosage: 1 DOSAGE FORM, BID (1 TWICE A DAY)
     Route: 065
  27. CALCIUM\CHOLECALCIFEROL [Concomitant]
     Active Substance: CALCIUM\CHOLECALCIFEROL
     Dosage: 1 DOSAGE FORM, BID (1 TWICE A DAY)
     Route: 065
  28. CALCIUM\CHOLECALCIFEROL [Concomitant]
     Active Substance: CALCIUM\CHOLECALCIFEROL
     Dosage: 1 DOSAGE FORM, BID (1 TWICE A DAY)
  29. ALENDRONIC ACID [Concomitant]
     Active Substance: ALENDRONIC ACID
     Dosage: 70 MILLIGRAM, QW (ONCE A WEEK ON THURSDAYS)
  30. ALENDRONIC ACID [Concomitant]
     Active Substance: ALENDRONIC ACID
     Dosage: 70 MILLIGRAM, QW (ONCE A WEEK ON THURSDAYS)
     Route: 065
  31. ALENDRONIC ACID [Concomitant]
     Active Substance: ALENDRONIC ACID
     Dosage: 70 MILLIGRAM, QW (ONCE A WEEK ON THURSDAYS)
     Route: 065
  32. ALENDRONIC ACID [Concomitant]
     Active Substance: ALENDRONIC ACID
     Dosage: 70 MILLIGRAM, QW (ONCE A WEEK ON THURSDAYS)
  33. ATORVASTATIN [Concomitant]
     Active Substance: ATORVASTATIN
     Dosage: 80 MILLIGRAM, PM (EVERY NIGHT)
  34. ATORVASTATIN [Concomitant]
     Active Substance: ATORVASTATIN
     Dosage: 80 MILLIGRAM, PM (EVERY NIGHT)
     Route: 065
  35. ATORVASTATIN [Concomitant]
     Active Substance: ATORVASTATIN
     Dosage: 80 MILLIGRAM, PM (EVERY NIGHT)
     Route: 065
  36. ATORVASTATIN [Concomitant]
     Active Substance: ATORVASTATIN
     Dosage: 80 MILLIGRAM, PM (EVERY NIGHT)
  37. EDOXABAN [Concomitant]
     Active Substance: EDOXABAN
     Dosage: 60 MILLIGRAM, AM (EVERY MORNING, REDUCED DUE TO AKI + HELD DUE TO HAEMORRHAGE))
  38. EDOXABAN [Concomitant]
     Active Substance: EDOXABAN
     Dosage: 60 MILLIGRAM, AM (EVERY MORNING, REDUCED DUE TO AKI + HELD DUE TO HAEMORRHAGE))
     Route: 065
  39. EDOXABAN [Concomitant]
     Active Substance: EDOXABAN
     Dosage: 60 MILLIGRAM, AM (EVERY MORNING, REDUCED DUE TO AKI + HELD DUE TO HAEMORRHAGE))
     Route: 065
  40. EDOXABAN [Concomitant]
     Active Substance: EDOXABAN
     Dosage: 60 MILLIGRAM, AM (EVERY MORNING, REDUCED DUE TO AKI + HELD DUE TO HAEMORRHAGE))
  41. FERROUS FUMARATE [Concomitant]
     Active Substance: FERROUS FUMARATE
     Dosage: 210 MILLIGRAM, QD (ONE TO BE TAKEN DAILY)
  42. FERROUS FUMARATE [Concomitant]
     Active Substance: FERROUS FUMARATE
     Dosage: 210 MILLIGRAM, QD (ONE TO BE TAKEN DAILY)
     Route: 065
  43. FERROUS FUMARATE [Concomitant]
     Active Substance: FERROUS FUMARATE
     Dosage: 210 MILLIGRAM, QD (ONE TO BE TAKEN DAILY)
     Route: 065
  44. FERROUS FUMARATE [Concomitant]
     Active Substance: FERROUS FUMARATE
     Dosage: 210 MILLIGRAM, QD (ONE TO BE TAKEN DAILY)
  45. GLYCERIN [Concomitant]
     Active Substance: GLYCERIN
  46. GLYCERIN [Concomitant]
     Active Substance: GLYCERIN
     Route: 065
  47. GLYCERIN [Concomitant]
     Active Substance: GLYCERIN
     Route: 065
  48. GLYCERIN [Concomitant]
     Active Substance: GLYCERIN
  49. SERTRALINE [Concomitant]
     Active Substance: SERTRALINE HYDROCHLORIDE
     Dosage: 50 MILLIGRAM, QD (ONE TO BE TAKEN EACH DAY)
  50. SERTRALINE [Concomitant]
     Active Substance: SERTRALINE HYDROCHLORIDE
     Dosage: 50 MILLIGRAM, QD (ONE TO BE TAKEN EACH DAY)
     Route: 065
  51. SERTRALINE [Concomitant]
     Active Substance: SERTRALINE HYDROCHLORIDE
     Dosage: 50 MILLIGRAM, QD (ONE TO BE TAKEN EACH DAY)
     Route: 065
  52. SERTRALINE [Concomitant]
     Active Substance: SERTRALINE HYDROCHLORIDE
     Dosage: 50 MILLIGRAM, QD (ONE TO BE TAKEN EACH DAY)
  53. GABAPENTIN [Concomitant]
     Active Substance: GABAPENTIN
     Dosage: 600 MILLIGRAM, Q8H (THREE TIMES A DAY)
  54. GABAPENTIN [Concomitant]
     Active Substance: GABAPENTIN
     Dosage: 600 MILLIGRAM, Q8H (THREE TIMES A DAY)
     Route: 065
  55. GABAPENTIN [Concomitant]
     Active Substance: GABAPENTIN
     Dosage: 600 MILLIGRAM, Q8H (THREE TIMES A DAY)
     Route: 065
  56. GABAPENTIN [Concomitant]
     Active Substance: GABAPENTIN
     Dosage: 600 MILLIGRAM, Q8H (THREE TIMES A DAY)
  57. POLYETHYLENE GLYCOL 3350\POTASSIUM CHLORIDE\SODIUM BICARBONATE\SODIUM [Concomitant]
     Active Substance: POLYETHYLENE GLYCOL 3350\POTASSIUM CHLORIDE\SODIUM BICARBONATE\SODIUM CHLORIDE
     Indication: Constipation
     Dosage: 1 DOSAGE FORM, BID (TAKE ONE TWICE A DAY)
  58. POLYETHYLENE GLYCOL 3350\POTASSIUM CHLORIDE\SODIUM BICARBONATE\SODIUM [Concomitant]
     Active Substance: POLYETHYLENE GLYCOL 3350\POTASSIUM CHLORIDE\SODIUM BICARBONATE\SODIUM CHLORIDE
     Dosage: 1 DOSAGE FORM, BID (TAKE ONE TWICE A DAY)
     Route: 048
  59. POLYETHYLENE GLYCOL 3350\POTASSIUM CHLORIDE\SODIUM BICARBONATE\SODIUM [Concomitant]
     Active Substance: POLYETHYLENE GLYCOL 3350\POTASSIUM CHLORIDE\SODIUM BICARBONATE\SODIUM CHLORIDE
     Dosage: 1 DOSAGE FORM, BID (TAKE ONE TWICE A DAY)
     Route: 048
  60. POLYETHYLENE GLYCOL 3350\POTASSIUM CHLORIDE\SODIUM BICARBONATE\SODIUM [Concomitant]
     Active Substance: POLYETHYLENE GLYCOL 3350\POTASSIUM CHLORIDE\SODIUM BICARBONATE\SODIUM CHLORIDE
     Dosage: 1 DOSAGE FORM, BID (TAKE ONE TWICE A DAY)
  61. OXYCODONE [Concomitant]
     Active Substance: OXYCODONE
     Indication: Pain
  62. OXYCODONE [Concomitant]
     Active Substance: OXYCODONE
     Route: 048
  63. OXYCODONE [Concomitant]
     Active Substance: OXYCODONE
     Route: 048
  64. OXYCODONE [Concomitant]
     Active Substance: OXYCODONE
  65. POTASSIUM BICARBONATE\SODIUM ALGINATE [Concomitant]
     Active Substance: POTASSIUM BICARBONATE\SODIUM ALGINATE
  66. POTASSIUM BICARBONATE\SODIUM ALGINATE [Concomitant]
     Active Substance: POTASSIUM BICARBONATE\SODIUM ALGINATE
     Route: 048
  67. POTASSIUM BICARBONATE\SODIUM ALGINATE [Concomitant]
     Active Substance: POTASSIUM BICARBONATE\SODIUM ALGINATE
     Route: 048
  68. POTASSIUM BICARBONATE\SODIUM ALGINATE [Concomitant]
     Active Substance: POTASSIUM BICARBONATE\SODIUM ALGINATE
  69. COCODAMOL [Concomitant]
     Active Substance: ACETAMINOPHEN\CODEINE PHOSPHATE
     Dosage: 2 DOSAGE FORM, QID (2 FOUR TIMES A DAY)
  70. COCODAMOL [Concomitant]
     Active Substance: ACETAMINOPHEN\CODEINE PHOSPHATE
     Dosage: 2 DOSAGE FORM, QID (2 FOUR TIMES A DAY)
     Route: 065
  71. COCODAMOL [Concomitant]
     Active Substance: ACETAMINOPHEN\CODEINE PHOSPHATE
     Dosage: 2 DOSAGE FORM, QID (2 FOUR TIMES A DAY)
     Route: 065
  72. COCODAMOL [Concomitant]
     Active Substance: ACETAMINOPHEN\CODEINE PHOSPHATE
     Dosage: 2 DOSAGE FORM, QID (2 FOUR TIMES A DAY)
  73. ACETAMINOPHEN [Concomitant]
     Active Substance: ACETAMINOPHEN
  74. ACETAMINOPHEN [Concomitant]
     Active Substance: ACETAMINOPHEN
     Route: 065
  75. ACETAMINOPHEN [Concomitant]
     Active Substance: ACETAMINOPHEN
     Route: 065
  76. ACETAMINOPHEN [Concomitant]
     Active Substance: ACETAMINOPHEN

REACTIONS (1)
  - Acute kidney injury [Recovered/Resolved]
